FAERS Safety Report 8718112 (Version 3)
Quarter: 2015Q2

REPORT INFORMATION
  Report Type: Spontaneous
  Country: US (occurrence: US)
  Receive Date: 20120810
  Receipt Date: 20150524
  Transmission Date: 20150821
  Serious: Yes (Other)
  Sender: FDA-Public Use
  Company Number: US-JNJFOC-20120613867

PATIENT
  Age: 50 Year
  Sex: Male
  Weight: 79.38 kg

DRUGS (12)
  1. BUSPAR [Concomitant]
     Active Substance: BUSPIRONE HYDROCHLORIDE
     Indication: ANXIETY
     Route: 048
     Dates: start: 20120625
  2. PROTONIX [Concomitant]
     Active Substance: PANTOPRAZOLE SODIUM
     Indication: GASTROOESOPHAGEAL REFLUX DISEASE
     Route: 048
     Dates: start: 201204
  3. AMBIEN CR [Suspect]
     Active Substance: ZOLPIDEM TARTRATE
     Indication: SLEEP DISORDER
     Route: 048
     Dates: start: 2010, end: 201207
  4. INDERAL [Concomitant]
     Active Substance: PROPRANOLOL HYDROCHLORIDE
     Indication: HYPERTENSION
     Route: 048
     Dates: start: 201201
  5. PROPRANOLOL [Concomitant]
     Active Substance: PROPRANOLOL\PROPRANOLOL HYDROCHLORIDE
     Indication: TREMOR
     Route: 048
     Dates: start: 2007
  6. CLONIDINE. [Concomitant]
     Active Substance: CLONIDINE
     Indication: HYPERTENSION
     Route: 048
     Dates: start: 201206
  7. KLOR-CON [Concomitant]
     Active Substance: POTASSIUM CHLORIDE
     Indication: BLOOD POTASSIUM DECREASED
     Route: 048
     Dates: start: 20120616
  8. PERCOCET [Concomitant]
     Active Substance: ACETAMINOPHEN\OXYCODONE HYDROCHLORIDE
     Indication: TRIGEMINAL NEURALGIA
     Dosage: 10-325 MG THREE TIMES A DAY.
     Route: 048
     Dates: start: 2007, end: 20120729
  9. FISH OIL [Concomitant]
     Active Substance: FISH OIL
     Indication: BLOOD CHOLESTEROL INCREASED
     Route: 048
     Dates: start: 2008
  10. NEXIUM [Concomitant]
     Active Substance: ESOMEPRAZOLE MAGNESIUM
     Indication: GASTROOESOPHAGEAL REFLUX DISEASE
     Route: 048
     Dates: start: 2012
  11. FENTANYL TRANSDERMAL SYSTEM [Suspect]
     Active Substance: FENTANYL
     Indication: INTERVERTEBRAL DISC DEGENERATION
     Dosage: 2 50 MCG PATCH (NDC-0781-7221-55)
     Route: 062
     Dates: start: 20120119
  12. FENTANYL TRANSDERMAL SYSTEM [Suspect]
     Active Substance: FENTANYL
     Indication: INTERVERTEBRAL DISC DEGENERATION
     Dosage: NDC 0781-7244-55
     Route: 062
     Dates: start: 20120706

REACTIONS (17)
  - Breakthrough pain [Not Recovered/Not Resolved]
  - Hypertension [Not Recovered/Not Resolved]
  - Diarrhoea [Recovering/Resolving]
  - Decreased appetite [Not Recovered/Not Resolved]
  - Middle insomnia [Not Recovered/Not Resolved]
  - Asthenia [Not Recovered/Not Resolved]
  - Nausea [Recovered/Resolved]
  - Chest pain [Not Recovered/Not Resolved]
  - Hypersomnia [Unknown]
  - Palpitations [Not Recovered/Not Resolved]
  - Dizziness [Not Recovered/Not Resolved]
  - Oesophageal disorder [Recovered/Resolved]
  - Abnormal loss of weight [Not Recovered/Not Resolved]
  - Abdominal pain [Recovering/Resolving]
  - Withdrawal syndrome [Not Recovered/Not Resolved]
  - Weight increased [Recovered/Resolved]
  - Head discomfort [Not Recovered/Not Resolved]

NARRATIVE: CASE EVENT DATE: 20120621
